FAERS Safety Report 8557600-7 (Version None)
Quarter: 2012Q3

REPORT INFORMATION
  Report Type: 
  Country: None (occurrence: None)
  Receive Date: 20120801
  Receipt Date: 20120723
  Transmission Date: 20120928
  Serious: Yes (Other)
  Sender: FDA-Public Use
  Company Number: US-ASTRAZENECA-2012SE25110

PATIENT
  Age: 69 Year
  Sex: Female
  Weight: 67.6 kg

DRUGS (36)
  1. SOTALOL HYDROCHLORIDE [Concomitant]
     Dates: start: 19970101
  2. PHAYME [Concomitant]
  3. MIRALAX [Concomitant]
     Dosage: STANDARD AMOUNT ONCE A DAY, AS NEEEDED 2 TIMES A DAY,
  4. FLUTICASONE PROPIONATE [Concomitant]
     Dosage: 2 PUFF ONCE A DAY
  5. ALDACTONE [Concomitant]
  6. ASPIRIN [Concomitant]
  7. SUSTENEX (PROBIOTIC) [Concomitant]
  8. FIBER CHOICE (PROBIOTIC) [Concomitant]
  9. PANTOPRAZOLE [Concomitant]
     Indication: GASTROOESOPHAGEAL REFLUX DISEASE
  10. FLUTICASONE PROPIONATE [Concomitant]
     Dosage: 2 PUFF TWICE A DAY
  11. GENERIC FOR LASIX [Concomitant]
  12. CRESTOR [Suspect]
     Indication: BLOOD CHOLESTEROL INCREASED
     Route: 048
  13. XANAX [Concomitant]
     Dosage: 0.5 MG AT BEDTIME AND 0.25 MG 3 TIMES IN A DAY
  14. GENERIC LORTAB [Concomitant]
     Dosage: 7.5 TO 500 MG AS NEEDED
  15. PLAVIX [Concomitant]
  16. VITAMIN B-12 [Concomitant]
  17. VITAMIN C WITH ROSEHIP [Concomitant]
  18. CRESTOR [Suspect]
     Route: 048
     Dates: end: 20120414
  19. MILK OF MAGNESIA TAB [Concomitant]
  20. CALCIUM CALTRATE PLUS D [Concomitant]
     Dosage: 600 TWICE A DAY
  21. FLUNISOLIDE NASAL [Concomitant]
     Dosage: 0.025 MGC, USP 0.025%.
  22. GABAPENTIN [Concomitant]
  23. TRILIPIX [Concomitant]
  24. SYNTHROID [Concomitant]
  25. VITAMIN D [Concomitant]
     Dosage: 1500 IU, FREQUENCY UNKNOWN
  26. CRESTOR [Suspect]
     Indication: DYSLIPIDAEMIA
     Route: 048
  27. ALLEGRA [Concomitant]
  28. CRESTOR [Suspect]
     Route: 048
     Dates: end: 20120414
  29. CYMBALTA [Concomitant]
  30. ZOLOFT [Concomitant]
  31. ZOLOFT [Concomitant]
  32. COLACE [Concomitant]
  33. HOMOLOG R [Concomitant]
     Dosage: AFTER DINNER BETWEEN 6 TO 10 UNITS DEPENDING ON HER FOOD
  34. NHP [Concomitant]
     Dosage: 24 OR 25 AT BEDTIME
  35. FLAXSEED [Concomitant]
     Dosage: 1000 MG 4 TIMES A DAY FOR OCCAISONAL USE
  36. VITAMIN AND MINERAL PRENATAL SUPPLEMENT W/ FOLIC ACID CAP [Concomitant]

REACTIONS (7)
  - ERYTHEMA [None]
  - SKIN EXFOLIATION [None]
  - IMPAIRED HEALING [None]
  - GAIT DISTURBANCE [None]
  - FIBROMYALGIA [None]
  - LACERATION [None]
  - VISION BLURRED [None]
